FAERS Safety Report 23902384 (Version 1)
Quarter: 2024Q2

REPORT INFORMATION
  Report Type: Spontaneous
  Country: US (occurrence: US)
  Receive Date: 20240527
  Receipt Date: 20240527
  Transmission Date: 20240716
  Serious: Yes (Life-Threatening, Hospitalization)
  Sender: FDA-Public Use
  Company Number: US-ALKEM LABORATORIES LIMITED-US-ALKEM-2024-10484

PATIENT
  Age: 93 Year
  Sex: Female

DRUGS (5)
  1. TIZANIDINE [Suspect]
     Active Substance: TIZANIDINE
     Indication: Back injury
     Dosage: 4 MILLIGRAM, ONCE
     Route: 048
  2. METOPROLOL SUCCINATE [Suspect]
     Active Substance: METOPROLOL SUCCINATE
     Indication: Product used for unknown indication
     Dosage: UNK
     Route: 065
  3. METOPROLOL SUCCINATE [Suspect]
     Active Substance: METOPROLOL SUCCINATE
     Dosage: UNK (RESTARTED)
     Route: 065
  4. DILTIAZEM [Suspect]
     Active Substance: DILTIAZEM
     Indication: Product used for unknown indication
     Route: 065
  5. DILTIAZEM [Suspect]
     Active Substance: DILTIAZEM
     Dosage: UNK (RESTARTED)
     Route: 065

REACTIONS (5)
  - Dysstasia [Unknown]
  - Bradycardia [Unknown]
  - Speech disorder [Unknown]
  - Unresponsive to stimuli [Unknown]
  - Hypotension [Unknown]
